FAERS Safety Report 4559379-2 (Version None)
Quarter: 2005Q1

REPORT INFORMATION
  Report Type: 
  Country: None (occurrence: None)
  Receive Date: 20050119
  Receipt Date: 20050112
  Transmission Date: 20050727
  Serious: Yes (Other)
  Sender: FDA-Public Use
  Company Number: GBWYE333612JAN05

PATIENT
  Sex: Female

DRUGS (3)
  1. EFFEXOR XR [Suspect]
     Dosage: 75 MG 1X PER 1 DAY; ORAL
     Route: 048
     Dates: start: 20041101, end: 20050101
  2. MIRTAZAPINE [Concomitant]
  3. PREMARIN [Concomitant]

REACTIONS (2)
  - CONVULSION [None]
  - SYNCOPE [None]
